FAERS Safety Report 13300580 (Version 1)
Quarter: 2017Q1

REPORT INFORMATION
  Report Type: Spontaneous
  Country: US (occurrence: US)
  Receive Date: 20170307
  Receipt Date: 20170307
  Transmission Date: 20170428
  Serious: No
  Sender: FDA-Public Use
  Company Number: US-AUROBINDO-AUR-APU-2016-09557

PATIENT
  Age: 17 Year
  Sex: Male

DRUGS (1)
  1. METFORMIN HYDROCHLORIDE TABLETS USP 500 MG [Suspect]
     Active Substance: METFORMIN HYDROCHLORIDE
     Indication: INSULIN RESISTANCE
     Dosage: 3 DF, DAILY
     Dates: start: 201605

REACTIONS (1)
  - Wrong technique in product usage process [Unknown]
